FAERS Safety Report 4353317-3 (Version None)
Quarter: 2004Q2

REPORT INFORMATION
  Report Type: 
  Country: None (occurrence: None)
  Receive Date: 20040504
  Receipt Date: 20040504
  Transmission Date: 20050107
  Serious: Yes (Death)
  Sender: FDA-Public Use
  Company Number: None

PATIENT
  Age: 34 Year
  Sex: Female
  Weight: 47.6277 kg

DRUGS (3)
  1. IMIPRAMINE [Suspect]
     Dosage: 4 SID ORAL
     Route: 048
     Dates: start: 19960201, end: 20010324
  2. VALIUM [Suspect]
     Indication: ACCIDENT
     Dosage: 1 TID ORAL
     Route: 048
     Dates: start: 19960201, end: 20010324
  3. VALIUM [Suspect]
     Indication: PAIN
     Dosage: 1 TID ORAL
     Route: 048
     Dates: start: 19960201, end: 20010324

REACTIONS (3)
  - COMPLETED SUICIDE [None]
  - HEPATIC FAILURE [None]
  - OVERDOSE [None]
